FAERS Safety Report 21184774 (Version 2)
Quarter: 2022Q4

REPORT INFORMATION
  Report Type: Report from Study
  Country: DE (occurrence: DE)
  Receive Date: 20220808
  Receipt Date: 20221223
  Transmission Date: 20230112
  Serious: Yes (Hospitalization)
  Sender: FDA-Public Use
  Company Number: DE-SA-SAC20220804002268

PATIENT
  Age: 61 Year
  Sex: Female
  Weight: 50 kg

DRUGS (8)
  1. ISATUXIMAB [Suspect]
     Active Substance: ISATUXIMAB
     Indication: Plasma cell myeloma
     Dosage: 501 MG
     Route: 065
     Dates: start: 20211110, end: 20211110
  2. ISATUXIMAB [Suspect]
     Active Substance: ISATUXIMAB
     Dosage: 501 MG
     Dates: start: 20220525, end: 20220525
  3. CARFILZOMIB [Suspect]
     Active Substance: CARFILZOMIB
     Indication: Plasma cell myeloma
     Dosage: 81.20 MG
     Dates: start: 20211110, end: 20211110
  4. CARFILZOMIB [Suspect]
     Active Substance: CARFILZOMIB
     Dosage: 81.20 MG
     Dates: start: 20220525, end: 20220525
  5. LENALIDOMIDE [Suspect]
     Active Substance: LENALIDOMIDE
     Indication: Plasma cell myeloma
     Dosage: 10 MG
     Dates: start: 20211110, end: 20211110
  6. LENALIDOMIDE [Suspect]
     Active Substance: LENALIDOMIDE
     Dosage: 10 MG
     Dates: start: 20220601, end: 20220601
  7. DEXAMETHASONE [Concomitant]
     Active Substance: DEXAMETHASONE
     Indication: Plasma cell myeloma
     Dosage: 40 MG
     Dates: start: 20211110, end: 20211110
  8. DEXAMETHASONE [Concomitant]
     Active Substance: DEXAMETHASONE
     Dosage: 40 MG
     Dates: start: 20220602, end: 20220602

REACTIONS (1)
  - Gastrointestinal infection [Recovering/Resolving]

NARRATIVE: CASE EVENT DATE: 20220727
